FAERS Safety Report 9504051 (Version 3)
Quarter: 2013Q4

REPORT INFORMATION
  Report Type: Report from Study
  Country: FR (occurrence: FR)
  Receive Date: 20130906
  Receipt Date: 20131003
  Transmission Date: 20140711
  Serious: Yes (Hospitalization, Other)
  Sender: FDA-Public Use
  Company Number: PHHY2012FR041815

PATIENT
  Age: 52 Year
  Sex: Male

DRUGS (4)
  1. MYCOPHENOLIC ACID [Suspect]
     Indication: IMMUNOSUPPRESSION
     Dosage: 1440 MG, QD
     Route: 048
     Dates: start: 20101122
  2. NEORAL [Suspect]
     Indication: IMMUNOSUPPRESSION
     Dosage: 250 MG, DAILY
     Route: 048
     Dates: start: 20110722
  3. NEORAL [Suspect]
     Dosage: 275 MG DAILY
     Route: 048
     Dates: start: 20120504
  4. CORTANCYL [Concomitant]
     Indication: IMMUNOSUPPRESSION
     Dosage: 5 MG, QD
     Route: 048
     Dates: start: 20110325

REACTIONS (7)
  - Renal failure acute [Recovered/Resolved with Sequelae]
  - Metabolic acidosis [Recovered/Resolved]
  - Hypokalaemia [Recovered/Resolved]
  - Anaemia [Recovered/Resolved]
  - Renal tubular necrosis [Unknown]
  - Diarrhoea [Not Recovered/Not Resolved]
  - Kidney transplant rejection [Recovered/Resolved]
